FAERS Safety Report 8033121-5 (Version None)
Quarter: 2012Q1

REPORT INFORMATION
  Report Type: 
  Country: None (occurrence: None)
  Receive Date: 20120110
  Receipt Date: 20120110
  Transmission Date: 20120608
  Serious: Yes (Hospitalization)
  Sender: FDA-Public Use
  Company Number: None

PATIENT
  Age: 67 Year
  Sex: Female
  Weight: 52.616 kg

DRUGS (1)
  1. RECLAST [Suspect]
     Indication: OSTEOPOROSIS
     Dosage: 5MG/100ML
     Route: 041
     Dates: start: 20120104, end: 20120104

REACTIONS (5)
  - BACK PAIN [None]
  - BODY TEMPERATURE INCREASED [None]
  - HEADACHE [None]
  - ARTHRALGIA [None]
  - ABASIA [None]
